FAERS Safety Report 21712986 (Version 5)
Quarter: 2024Q1

REPORT INFORMATION
  Report Type: Other
  Country: DE (occurrence: None)
  Receive Date: 20221212
  Receipt Date: 20240105
  Transmission Date: 20240410
  Serious: Yes (Hospitalization, Other)
  Sender: FDA-Public Use
  Company Number: DE-ROCHE-2256636

PATIENT
  Age: 55 Year
  Sex: Female

DRUGS (12)
  1. OCREVUS [Suspect]
     Active Substance: OCRELIZUMAB
     Indication: Relapsing-remitting multiple sclerosis
     Dosage: 600 MG FREQUENCY: 186 DAYS?600 MG FREQUENCY 208 DAYS?600 MG FREQUENCY 195 DAYS
     Route: 042
     Dates: start: 20190122
  2. OCREVUS [Suspect]
     Active Substance: OCRELIZUMAB
     Route: 042
     Dates: start: 20190716
  3. OCREVUS [Suspect]
     Active Substance: OCRELIZUMAB
     Route: 042
     Dates: start: 20200121
  4. OCREVUS [Suspect]
     Active Substance: OCRELIZUMAB
     Route: 042
     Dates: start: 20200729
  5. OCREVUS [Suspect]
     Active Substance: OCRELIZUMAB
     Route: 042
     Dates: start: 20210226
  6. OCREVUS [Suspect]
     Active Substance: OCRELIZUMAB
     Dosage: 5TH MAINTENANCE DOSE
     Route: 042
     Dates: start: 20210909
  7. CANDESARTAN [Concomitant]
     Active Substance: CANDESARTAN
     Dosage: 16/12.5 MG
  8. SPASMEX (GERMANY) [Concomitant]
  9. LIPOCOL [Concomitant]
  10. TORSEMIDE [Concomitant]
     Active Substance: TORSEMIDE
  11. CHOLECALCIFEROL [Concomitant]
     Active Substance: CHOLECALCIFEROL
  12. AMLODIPINE [Concomitant]
     Active Substance: AMLODIPINE BESYLATE

REACTIONS (16)
  - Multiple sclerosis [Not Recovered/Not Resolved]
  - Epilepsy [Recovered/Resolved]
  - Pneumonitis [Recovered/Resolved]
  - Hypotension [Recovered/Resolved]
  - Fatigue [Recovered/Resolved]
  - Feeling cold [Not Recovered/Not Resolved]
  - Fatigue [Recovered/Resolved]
  - Dizziness [Not Recovered/Not Resolved]
  - Gait disturbance [Recovered/Resolved]
  - Muscular weakness [Recovered/Resolved]
  - Feeling abnormal [Recovered/Resolved]
  - Feeling drunk [Recovered/Resolved]
  - Pain in extremity [Recovered/Resolved]
  - Coronavirus infection [Recovered/Resolved]
  - Vision blurred [Not Recovered/Not Resolved]
  - Asthenia [Recovered/Resolved]

NARRATIVE: CASE EVENT DATE: 20190129
